FAERS Safety Report 26084597 (Version 2)
Quarter: 2025Q4

REPORT INFORMATION
  Report Type: Report from Study
  Country: MX (occurrence: MX)
  Receive Date: 20251124
  Receipt Date: 20251125
  Transmission Date: 20260117
  Serious: Yes (Death)
  Sender: ABBVIE
  Company Number: MX-ABBVIE-6561597

PATIENT
  Age: 74 Year
  Sex: Male
  Weight: 76 kg

DRUGS (9)
  1. VENCLEXTA [Suspect]
     Active Substance: VENETOCLAX
     Indication: Chronic lymphocytic leukaemia
     Dosage: FORM STRENGTH: 100 MG X 120
     Route: 048
     Dates: start: 20240307, end: 202506
  2. MINITRAN [Concomitant]
     Active Substance: NITROGLYCERIN
     Indication: Chest pain
     Dates: end: 20251107
  3. ASPIRIN [Concomitant]
     Active Substance: ASPIRIN
     Indication: Bundle branch block right
     Dosage: AT 18:00H, ONLY THE FIRST 10 DAYS OF THE MONTH
     Route: 048
  4. VALSARTAN [Concomitant]
     Active Substance: VALSARTAN
     Indication: Bundle branch block right
     Route: 048
     Dates: end: 20251107
  5. ACETAMINOPHEN [Concomitant]
     Active Substance: ACETAMINOPHEN
     Indication: Arthralgia
     Route: 048
     Dates: end: 20251107
  6. TRAMADOL [Concomitant]
     Active Substance: TRAMADOL
     Indication: Arthralgia
     Route: 048
     Dates: end: 20251107
  7. KETOPROFEN [Concomitant]
     Active Substance: KETOPROFEN
     Indication: Arthralgia
     Route: 048
     Dates: end: 20251107
  8. RITUXIMAB [Concomitant]
     Active Substance: RITUXIMAB
     Indication: Chronic lymphocytic leukaemia
     Dates: end: 202506
  9. Debisor [Concomitant]
     Indication: Bundle branch block right
     Route: 048

REACTIONS (1)
  - Myocardial infarction [Fatal]

NARRATIVE: CASE EVENT DATE: 20251107
